FAERS Safety Report 10174458 (Version 1)
Quarter: 2014Q2

REPORT INFORMATION
  Report Type: Spontaneous
  Country: US (occurrence: US)
  Receive Date: 20140515
  Receipt Date: 20140515
  Transmission Date: 20141212
  Serious: No
  Sender: FDA-Public Use
  Company Number: US-BAYER-2014-070207

PATIENT
  Age: 72 Year
  Sex: Female
  Weight: 56.24 kg

DRUGS (1)
  1. ALEVE CAPLET [Suspect]
     Indication: PAIN IN EXTREMITY
     Dosage: 2 DF, BID
     Route: 048
     Dates: start: 20140508

REACTIONS (3)
  - Extra dose administered [None]
  - Tremor [Recovered/Resolved]
  - Ocular discomfort [Not Recovered/Not Resolved]
